FAERS Safety Report 23909435 (Version 1)
Quarter: 2024Q2

REPORT INFORMATION
  Report Type: Spontaneous
  Country: US (occurrence: US)
  Receive Date: 20240528
  Receipt Date: 20240528
  Transmission Date: 20240716
  Serious: Yes (Hospitalization, Other)
  Sender: FDA-Public Use
  Company Number: US-SLATERUN-2024SRLIT00086

PATIENT
  Age: 41 Year
  Sex: Male

DRUGS (3)
  1. VANCOMYCIN [Suspect]
     Active Substance: VANCOMYCIN
     Indication: Cellulitis
     Route: 042
  2. VANCOMYCIN [Suspect]
     Active Substance: VANCOMYCIN
     Dosage: EVERY 12 HOURS
     Route: 042
  3. CEFAZOLIN [Concomitant]
     Active Substance: CEFAZOLIN
     Route: 042

REACTIONS (1)
  - Kounis syndrome [Recovered/Resolved]
